FAERS Safety Report 8222978-0 (Version None)
Quarter: 2012Q1

REPORT INFORMATION
  Report Type: 
  Country: None (occurrence: None)
  Receive Date: 20120320
  Receipt Date: 20120315
  Transmission Date: 20120608
  Serious: Yes (Other)
  Sender: FDA-Public Use
  Company Number: US-ASTRAZENECA-2012SE17790

PATIENT
  Age: 12 Year
  Sex: Female

DRUGS (1)
  1. SYMBICORT [Suspect]
     Dosage: 80/4.5 MCG, UNKNOWN FREQUENCY
     Route: 055

REACTIONS (1)
  - ELECTROCARDIOGRAM QT PROLONGED [None]
